FAERS Safety Report 5503313-5 (Version None)
Quarter: 2007Q4

REPORT INFORMATION
  Report Type: 
  Country: None (occurrence: None)
  Receive Date: 20071031
  Receipt Date: 20071019
  Transmission Date: 20080405
  Serious: Yes (Other)
  Sender: FDA-Public Use
  Company Number: US-PFIZER INC-2007078620

PATIENT
  Sex: Female

DRUGS (14)
  1. LYRICA [Suspect]
     Indication: NEURALGIA
     Route: 048
  2. ACTOS [Suspect]
  3. ACTOS [Suspect]
  4. JANUVIA [Suspect]
     Dates: start: 20070101, end: 20070901
  5. RELAFEN [Concomitant]
  6. DARVON [Concomitant]
  7. GLUCOTROL XL [Concomitant]
  8. PREVACID [Concomitant]
  9. PROTONIX [Concomitant]
  10. PAXIL [Concomitant]
  11. ATENOLOL [Concomitant]
  12. LIPITOR [Concomitant]
  13. ASPIRIN [Concomitant]
  14. ACTIGALL [Concomitant]

REACTIONS (4)
  - ACTIVITIES OF DAILY LIVING IMPAIRED [None]
  - DIABETES MELLITUS [None]
  - GLYCOSYLATED HAEMOGLOBIN INCREASED [None]
  - HEPATIC ENZYME INCREASED [None]
